FAERS Safety Report 20206693 (Version 6)
Quarter: 2022Q1

REPORT INFORMATION
  Report Type: Report from Study
  Country: MX (occurrence: MX)
  Receive Date: 20211220
  Receipt Date: 20220304
  Transmission Date: 20220423
  Serious: Yes (Other)
  Sender: FDA-Public Use
  Company Number: MX-NOVARTISPH-NVSC2021MX290419

PATIENT
  Sex: Female
  Weight: 68 kg

DRUGS (4)
  1. FEMARA [Suspect]
     Active Substance: LETROZOLE
     Indication: Breast cancer
     Dosage: 2.5 MG, QD (1 OF 2.5 MG)
     Route: 048
     Dates: start: 2016
  2. FEMARA [Suspect]
     Active Substance: LETROZOLE
     Dosage: 2.5 MG, QD (1 DF)
     Route: 048
     Dates: start: 2017
  3. FEMARA [Suspect]
     Active Substance: LETROZOLE
     Dosage: 1 OF 2.5 MG, QD
     Route: 048
     Dates: start: 2018
  4. ROSUVASTATIN [Concomitant]
     Active Substance: ROSUVASTATIN
     Indication: Blood cholesterol
     Dosage: 1 OF 10 MG, QD (BEFORE STARTING FEMARA) (1DE 10 MG)
     Route: 048
     Dates: start: 2018

REACTIONS (9)
  - Arthritis [Not Recovered/Not Resolved]
  - Neoplasm [Recovered/Resolved]
  - Finger deformity [Unknown]
  - Blood glucose increased [Not Recovered/Not Resolved]
  - Weight increased [Not Recovered/Not Resolved]
  - Fibromyalgia [Not Recovered/Not Resolved]
  - Pain [Not Recovered/Not Resolved]
  - Discouragement [Not Recovered/Not Resolved]
  - Insomnia [Not Recovered/Not Resolved]

NARRATIVE: CASE EVENT DATE: 20160101
